FAERS Safety Report 5141111-5 (Version None)
Quarter: 2006Q4

REPORT INFORMATION
  Report Type: 
  Country: None (occurrence: None)
  Receive Date: 20061101
  Receipt Date: 20061019
  Transmission Date: 20070319
  Serious: Yes (Hospitalization)
  Sender: FDA-Public Use
  Company Number: PHNU2006DE03507

PATIENT
  Age: 84 Year
  Sex: Female

DRUGS (4)
  1. MOXONIDINE [Concomitant]
  2. ISOPTIN [Concomitant]
  3. MARCUMAR [Concomitant]
  4. DIOVAN [Suspect]
     Indication: HYPERTENSIVE HEART DISEASE
     Dosage: 1 DF, QD
     Route: 048
     Dates: start: 20060701, end: 20061015

REACTIONS (7)
  - GENERAL PHYSICAL HEALTH DETERIORATION [None]
  - GENERAL SYMPTOM [None]
  - HAEMOGLOBIN DECREASED [None]
  - ILL-DEFINED DISORDER [None]
  - LEUKOPENIA [None]
  - NEUTROPENIA [None]
  - NORMOCHROMIC NORMOCYTIC ANAEMIA [None]
